FAERS Safety Report 9111147 (Version 1)
Quarter: 2013Q1

REPORT INFORMATION
  Report Type: Spontaneous
  Country: US (occurrence: US)
  Receive Date: 20130219
  Receipt Date: 20130219
  Transmission Date: 20140127
  Serious: No
  Sender: FDA-Public Use
  Company Number: US-BRISTOL-MYERS SQUIBB COMPANY-16735086

PATIENT
  Age: 55 Year
  Sex: Female
  Weight: 81.63 kg

DRUGS (1)
  1. ORENCIA [Suspect]
     Indication: RHEUMATOID ARTHRITIS
     Dosage: LAST INF ON 04JUN12
     Route: 042

REACTIONS (4)
  - Upper respiratory tract infection [Unknown]
  - Skin fissures [Unknown]
  - Dry skin [Unknown]
  - Haemorrhage [Unknown]
